FAERS Safety Report 5752463-7 (Version None)
Quarter: 2008Q2

REPORT INFORMATION
  Report Type: 
  Country: None (occurrence: None)
  Receive Date: 20080529
  Receipt Date: 20080527
  Transmission Date: 20081010
  Serious: Yes (Other)
  Sender: FDA-Public Use
  Company Number: DE-BRISTOL-MYERS SQUIBB COMPANY-14207773

PATIENT
  Sex: Female

DRUGS (1)
  1. COAPROVEL TABS [Suspect]
     Route: 048

REACTIONS (3)
  - GAMMA-GLUTAMYLTRANSFERASE INCREASED [None]
  - POLYNEUROPATHY [None]
  - SYSTEMIC LUPUS ERYTHEMATOSUS [None]
